FAERS Safety Report 10227443 (Version 2)
Quarter: 2014Q2

REPORT INFORMATION
  Report Type: Spontaneous
  Country: FI (occurrence: FI)
  Receive Date: 20140610
  Receipt Date: 20140610
  Transmission Date: 20141212
  Serious: Yes (Hospitalization)
  Sender: FDA-Public Use
  Company Number: FI-AMGEN-FINSP2014039838

PATIENT
  Age: 87 Year
  Sex: Male

DRUGS (3)
  1. XGEVA [Suspect]
     Indication: PROSTATE CANCER
     Dosage: 120 MG, QMO
     Route: 058
  2. XGEVA [Suspect]
     Indication: METASTASES TO BONE
  3. NORSPAN                            /00444001/ [Concomitant]
     Indication: PAIN
     Dosage: UNK
     Route: 062

REACTIONS (5)
  - Gastrointestinal disorder [Not Recovered/Not Resolved]
  - Vomiting [Recovered/Resolved]
  - Gingival pain [Unknown]
  - Tooth loss [Unknown]
  - Nausea [Unknown]
